FAERS Safety Report 10512078 (Version 1)
Quarter: 2014Q4

REPORT INFORMATION
  Report Type: Spontaneous
  Country: US (occurrence: US)
  Receive Date: 20141010
  Receipt Date: 20141010
  Transmission Date: 20150528
  Serious: No
  Sender: FDA-Public Use
  Company Number: US-TARO-2014P1000544

PATIENT
  Sex: Female

DRUGS (1)
  1. LIDOCAINE OINTMENT USP 5% (FLAVORED) [Suspect]
     Active Substance: LIDOCAINE

REACTIONS (2)
  - Drug ineffective [Not Recovered/Not Resolved]
  - Product quality issue [Unknown]
